FAERS Safety Report 6412445-9 (Version None)
Quarter: 2009Q4

REPORT INFORMATION
  Report Type: 
  Country: None (occurrence: None)
  Receive Date: 20091023
  Receipt Date: 20091016
  Transmission Date: 20100525
  Serious: Yes (Disabling, Other)
  Sender: FDA-Public Use
  Company Number: GB-MERCK-0910GBR00054

PATIENT
  Age: 56 Year
  Sex: Female
  Weight: 61 kg

DRUGS (4)
  1. FOSAMAX [Suspect]
     Indication: BONE DISORDER
     Route: 048
     Dates: start: 20090818, end: 20090819
  2. MESALAMINE [Concomitant]
     Route: 048
     Dates: start: 20090818
  3. CALCIUM CARBONATE [Concomitant]
     Indication: BONE DISORDER
     Route: 048
     Dates: start: 20090818
  4. PREDNISOLONE [Concomitant]
     Indication: CROHN'S DISEASE
     Route: 048
     Dates: start: 20090818

REACTIONS (4)
  - CHEST PAIN [None]
  - CHILLS [None]
  - NASOPHARYNGITIS [None]
  - NAUSEA [None]
